FAERS Safety Report 4817686-X (Version None)
Quarter: 2005Q3

REPORT INFORMATION
  Report Type: 
  Country: None (occurrence: None)
  Receive Date: 20050929
  Receipt Date: 20050801
  Transmission Date: 20060218
  Serious: No
  Sender: FDA-Public Use
  Company Number: 05P-163-0307238-00

PATIENT
  Age: 76 Year
  Sex: Female

DRUGS (8)
  1. HUMIRA [Suspect]
     Indication: RHEUMATOID ARTHRITIS
     Dosage: 40 MG, 1 IN 1 WK, SUBCUTANEOUS
     Route: 058
     Dates: start: 20050624
  2. ALENDRONATE SODIUM [Concomitant]
  3. ESOMEPRAZOLE [Concomitant]
  4. ATORVASTATIN CALCIUM [Concomitant]
  5. PRINZINE [Concomitant]
  6. LEXAPRO [Concomitant]
  7. VALPROATE SODIUM [Concomitant]
  8. VITAMINS [Concomitant]

REACTIONS (4)
  - DRUG INEFFECTIVE [None]
  - INJECTION SITE ERYTHEMA [None]
  - INJECTION SITE NODULE [None]
  - INJECTION SITE PRURITUS [None]
